FAERS Safety Report 7343050-8 (Version None)
Quarter: 2011Q1

REPORT INFORMATION
  Report Type: 
  Country: None (occurrence: None)
  Receive Date: 20110310
  Receipt Date: 20110310
  Transmission Date: 20110831
  Serious: Yes (Death)
  Sender: FDA-Public Use
  Company Number: VN-ABBOTT-11P-087-0709641-00

PATIENT
  Age: 16 Year
  Sex: Male

DRUGS (1)
  1. SEVOFLURANE [Suspect]
     Indication: APPENDICECTOMY

REACTIONS (3)
  - HYPOTENSION [None]
  - CARDIAC ARREST [None]
  - HYPERTHERMIA MALIGNANT [None]
